FAERS Safety Report 24403133 (Version 1)
Quarter: 2024Q4

REPORT INFORMATION
  Report Type: Report from Study
  Country: US (occurrence: US)
  Receive Date: 20241007
  Receipt Date: 20241007
  Transmission Date: 20250115
  Serious: No
  Sender: ROCHE
  Company Number: US-ROCHE-3476980

PATIENT
  Age: 72 Year
  Sex: Male

DRUGS (8)
  1. GAZYVA [Suspect]
     Active Substance: OBINUTUZUMAB
     Indication: Product used for unknown indication
     Route: 065
  2. ACYLOVIR [Concomitant]
  3. ALLOPURINOL [Concomitant]
     Active Substance: ALLOPURINOL
  4. DULOXETINE [Concomitant]
     Active Substance: DULOXETINE
  5. FLUOROURACIL [Concomitant]
     Active Substance: FLUOROURACIL
  6. ONDANSETRON [Concomitant]
     Active Substance: ONDANSETRON
  7. PRAMIPEXOLE [Concomitant]
     Active Substance: PRAMIPEXOLE\PRAMIPEXOLE DIHYDROCHLORIDE
  8. TRAMADOL [Concomitant]
     Active Substance: TRAMADOL

REACTIONS (2)
  - Abdominal pain [Unknown]
  - Dyspnoea exertional [Unknown]
